FAERS Safety Report 18136351 (Version 1)
Quarter: 2020Q3

REPORT INFORMATION
  Report Type: Spontaneous
  Country: US (occurrence: US)
  Receive Date: 20200811
  Receipt Date: 20200811
  Transmission Date: 20201103
  Serious: Yes (Other)
  Sender: FDA-Public Use
  Company Number: US-TEVA-2020-US-1812138

PATIENT
  Age: 68 Year
  Sex: Female

DRUGS (2)
  1. TRAZODONE HYDROCHLORIDE. [Suspect]
     Active Substance: TRAZODONE HYDROCHLORIDE
     Indication: DEPRESSION
     Route: 065
     Dates: start: 2000
  2. TRAZODONE HYDROCHLORIDE. [Suspect]
     Active Substance: TRAZODONE HYDROCHLORIDE
     Indication: SLEEP DISORDER

REACTIONS (6)
  - Drug dependence [Not Recovered/Not Resolved]
  - Restlessness [Unknown]
  - Drug ineffective for unapproved indication [Unknown]
  - Product formulation issue [Unknown]
  - Inappropriate schedule of product administration [Unknown]
  - Insomnia [Not Recovered/Not Resolved]
